FAERS Safety Report 10907705 (Version 1)
Quarter: 2015Q1

REPORT INFORMATION
  Report Type: Spontaneous
  Country: US (occurrence: None)
  Receive Date: 20150309
  Receipt Date: 20150309
  Transmission Date: 20150721
  Serious: Yes (Disabling)
  Sender: FDA-Public Use
  Company Number: None

PATIENT
  Age: 65 Year
  Sex: Female
  Weight: 52.62 kg

DRUGS (11)
  1. VIVELLE DOT [Concomitant]
     Active Substance: ESTRADIOL
  2. PROMETRIUM [Concomitant]
     Active Substance: PROGESTERONE
  3. COQ10 [Concomitant]
     Active Substance: UBIDECARENONE
  4. LIALDA [Suspect]
     Active Substance: MESALAMINE
     Indication: DIVERTICULITIS
     Dosage: 2 PER DAY ONCE DAILY
     Route: 048
     Dates: start: 20140221, end: 20140428
  5. TRAVATAN [Concomitant]
     Active Substance: TRAVOPROST
  6. CALCIUM [Concomitant]
     Active Substance: CALCIUM
  7. MULTIVITAMIN [Concomitant]
     Active Substance: VITAMINS
  8. OMEGA 3 [Concomitant]
     Active Substance: OMEGA-3 FATTY ACIDS
  9. ASPIRIN. [Concomitant]
     Active Substance: ASPIRIN
  10. CIRCULATION AND VIEN SUPPORT CAPSULE [Concomitant]
  11. VITAMIN D3 [Concomitant]
     Active Substance: CHOLECALCIFEROL

REACTIONS (2)
  - Peripheral swelling [None]
  - Trigger finger [None]

NARRATIVE: CASE EVENT DATE: 20140428
